FAERS Safety Report 5804062-6 (Version None)
Quarter: 2008Q3

REPORT INFORMATION
  Report Type: 
  Country: None (occurrence: None)
  Receive Date: 20080707
  Receipt Date: 20080707
  Transmission Date: 20090109
  Serious: Yes (Disabling)
  Sender: FDA-Public Use
  Company Number: None

PATIENT
  Age: 66 Year
  Sex: Female

DRUGS (5)
  1. AREDIA [Suspect]
     Indication: BREAST CANCER METASTATIC
     Dosage: 90 MG MONTHLY IV
     Route: 042
     Dates: start: 20000401, end: 20030401
  2. ZOMETA [Suspect]
     Indication: BREAST CANCER METASTATIC
     Dosage: 4 MG MONTHLY IV
     Route: 042
     Dates: start: 20000401, end: 20070801
  3. XELODA [Concomitant]
  4. FEMARA [Concomitant]
  5. TAMOXIFEN CITRATE [Concomitant]

REACTIONS (3)
  - BONE DISORDER [None]
  - BONE PAIN [None]
  - OSTEOMYELITIS [None]
